FAERS Safety Report 5962001-1 (Version None)
Quarter: 2008Q4

REPORT INFORMATION
  Report Type: 
  Country: None (occurrence: None)
  Receive Date: 20081121
  Receipt Date: 20081114
  Transmission Date: 20090506
  Serious: Yes (Hospitalization)
  Sender: FDA-Public Use
  Company Number: IT-ROCHE-597226

PATIENT
  Sex: Female

DRUGS (2)
  1. KETOROLAC TROMETHAMINE [Suspect]
     Indication: ANALGESIA
     Dosage: FORMULATION VIAL
     Route: 065
     Dates: start: 20081008, end: 20081008
  2. ROCEPHIN [Suspect]
     Indication: ANTIBIOTIC PROPHYLAXIS
     Dosage: FORMULATION: VIAL
     Route: 030
     Dates: start: 20081008, end: 20081008

REACTIONS (5)
  - ERYTHEMA [None]
  - OEDEMA PERIPHERAL [None]
  - SENSE OF OPPRESSION [None]
  - TACHYCARDIA [None]
  - TREMOR [None]
